FAERS Safety Report 10699218 (Version 1)
Quarter: 2015Q1

REPORT INFORMATION
  Report Type: Spontaneous
  Country: FR (occurrence: FR)
  Receive Date: 20150108
  Receipt Date: 20150108
  Transmission Date: 20150721
  Serious: Yes (Hospitalization, Other)
  Sender: FDA-Public Use
  Company Number: FR-AMGEN-FRASP2015000402

PATIENT
  Age: 61 Year
  Sex: Male

DRUGS (9)
  1. GEMZAR [Suspect]
     Active Substance: GEMCITABINE HYDROCHLORIDE
     Indication: BRONCHIAL CARCINOMA
     Dosage: 1 IN ONE MONTH
     Route: 042
     Dates: start: 20140826, end: 20141209
  2. IMOVANE [Suspect]
     Active Substance: ZOPICLONE
     Indication: STEVENS-JOHNSON SYNDROME
     Dosage: UNK
     Route: 048
     Dates: start: 201407, end: 20141213
  3. LOVENOX [Concomitant]
     Active Substance: ENOXAPARIN SODIUM
     Dosage: UNK
     Route: 058
     Dates: start: 201408
  4. NEULASTA [Suspect]
     Active Substance: PEGFILGRASTIM
     Indication: PRODUCT USED FOR UNKNOWN INDICATION
     Dosage: 6 MG, 1 IN 1 DAY
     Route: 058
     Dates: end: 20141210
  5. TERBUTALINE SULFATE. [Suspect]
     Active Substance: TERBUTALINE SULFATE
     Indication: STEVENS-JOHNSON SYNDROME
     Dosage: UNK
     Route: 048
     Dates: start: 201407, end: 20141213
  6. CISPLATINE [Suspect]
     Active Substance: CISPLATIN
     Indication: BRONCHIAL CARCINOMA
     Dosage: UNK UNK, 1 IN 1 MONTH
     Route: 042
     Dates: start: 20140826, end: 20141209
  7. EUPANTOL [Suspect]
     Active Substance: PANTOPRAZOLE SODIUM
     Indication: STEVENS-JOHNSON SYNDROME
     Dosage: UNK
     Route: 048
     Dates: start: 201407, end: 20141213
  8. CORDARONE [Suspect]
     Active Substance: AMIODARONE HYDROCHLORIDE
     Indication: STEVENS-JOHNSON SYNDROME
     Dosage: UNK
     Route: 048
     Dates: start: 201407, end: 20141213
  9. EMEND [Suspect]
     Active Substance: APREPITANT
     Indication: BRONCHIAL CARCINOMA
     Dosage: UNK
     Route: 048
     Dates: start: 20140826, end: 20141211

REACTIONS (1)
  - Stevens-Johnson syndrome [Recovering/Resolving]

NARRATIVE: CASE EVENT DATE: 201411
